FAERS Safety Report 17637764 (Version 1)
Quarter: 2020Q2

REPORT INFORMATION
  Report Type: Spontaneous
  Country: DE (occurrence: DE)
  Receive Date: 20200407
  Receipt Date: 20200407
  Transmission Date: 20200713
  Serious: Yes (Other)
  Sender: FDA-Public Use
  Company Number: DE-PFIZER INC-2020140190

PATIENT
  Sex: Male

DRUGS (3)
  1. METHOTREXATE SODIUM. [Suspect]
     Active Substance: METHOTREXATE SODIUM
     Dates: end: 201909
  2. PREDNISONE. [Concomitant]
     Active Substance: PREDNISONE
     Dosage: 7.5 MG, DAILY
  3. ROACTEMRA [Suspect]
     Active Substance: TOCILIZUMAB
     Indication: RHEUMATIC DISORDER
     Dates: start: 201907

REACTIONS (1)
  - Pulmonary toxicity [Unknown]

NARRATIVE: CASE EVENT DATE: 201909
